FAERS Safety Report 5702059-8 (Version None)
Quarter: 2008Q2

REPORT INFORMATION
  Report Type: 
  Country: None (occurrence: None)
  Receive Date: 20080408
  Receipt Date: 20080328
  Transmission Date: 20081010
  Serious: Yes (Death, Other)
  Sender: FDA-Public Use
  Company Number: 2005JP000048

PATIENT
  Age: 21 Month
  Sex: Female
  Weight: 9.9 kg

DRUGS (3)
  1. PROGRAF [Suspect]
     Indication: SMALL INTESTINE TRANSPLANT
     Dates: start: 20030919, end: 20031030
  2. STEROID [Concomitant]
  3. SIMULECT [Concomitant]

REACTIONS (10)
  - CHOLANGITIS [None]
  - COAGULOPATHY [None]
  - GASTROINTESTINAL NECROSIS [None]
  - HEPATIC FAILURE [None]
  - HEPATIC STEATOSIS [None]
  - INTESTINAL RESECTION [None]
  - LYMPHOPROLIFERATIVE DISORDER [None]
  - PLEURAL EFFUSION [None]
  - SEPTIC SHOCK [None]
  - UPPER RESPIRATORY TRACT INFLAMMATION [None]
